FAERS Safety Report 10258985 (Version 1)
Quarter: 2014Q2

REPORT INFORMATION
  Report Type: Spontaneous
  Country: JP (occurrence: JP)
  Receive Date: 20140625
  Receipt Date: 20140625
  Transmission Date: 20141212
  Serious: Yes (Other)
  Sender: FDA-Public Use
  Company Number: JP-GLAXOSMITHKLINE-B0992794A

PATIENT
  Age: 8 Decade
  Sex: Male

DRUGS (4)
  1. ARZERRA [Suspect]
     Indication: CHRONIC LYMPHOCYTIC LEUKAEMIA
     Dosage: 300MG PER DAY
     Route: 042
     Dates: start: 20140404, end: 20140404
  2. DEXAMETHASONE [Concomitant]
     Route: 065
     Dates: start: 20140404, end: 20140404
  3. ACETAMINOPHEN [Concomitant]
     Route: 065
     Dates: start: 20140404, end: 20140404
  4. FEXOFENADINE HYDROCHLORIDE [Concomitant]
     Route: 048
     Dates: start: 20140404, end: 20140404

REACTIONS (1)
  - Pancytopenia [Recovered/Resolved]
